FAERS Safety Report 15453082 (Version 1)
Quarter: 2018Q4

REPORT INFORMATION
  Report Type: Spontaneous
  Country: GR (occurrence: GR)
  Receive Date: 20181001
  Receipt Date: 20181001
  Transmission Date: 20190204
  Serious: Yes (Other)
  Sender: FDA-Public Use
  Company Number: GR-SA-2018SA265512

PATIENT
  Age: 2 Year
  Sex: Female
  Weight: 20 kg

DRUGS (1)
  1. MYOZYME [Suspect]
     Active Substance: ALGLUCOSIDASE ALFA
     Route: 041

REACTIONS (3)
  - Left ventricular hypertrophy [Recovered/Resolved]
  - Incorrect dose administered [Unknown]
  - Cardiac septal hypertrophy [Recovered/Resolved]

NARRATIVE: CASE EVENT DATE: 2018
